FAERS Safety Report 16097024 (Version 2)
Quarter: 2019Q2

REPORT INFORMATION
  Report Type: Spontaneous
  Country: US (occurrence: US)
  Receive Date: 20190320
  Receipt Date: 20190405
  Transmission Date: 20190711
  Serious: Yes (Death, Hospitalization, Disabling, Other)
  Sender: FDA-Public Use
  Company Number: US-009507513-1903USA008058

PATIENT
  Sex: Male
  Weight: 120.18 kg

DRUGS (2)
  1. GEMZAR [Suspect]
     Active Substance: GEMCITABINE HYDROCHLORIDE
     Indication: PRODUCT USED FOR UNKNOWN INDICATION
     Route: 065
  2. JANUVIA [Suspect]
     Active Substance: SITAGLIPTIN PHOSPHATE
     Indication: TYPE 2 DIABETES MELLITUS
     Dosage: 100 MILLIGRAM, QD
     Route: 048
     Dates: start: 20160307, end: 20160506

REACTIONS (16)
  - Pleural effusion [Unknown]
  - Hepatic steatosis [Unknown]
  - Breast disorder male [Unknown]
  - Pulmonary hypertension [Unknown]
  - Lung disorder [Unknown]
  - Hypokalaemia [Unknown]
  - Adrenal mass [Unknown]
  - Acute pulmonary oedema [Unknown]
  - Leukocytosis [Unknown]
  - Depression [Unknown]
  - Malnutrition [Unknown]
  - Clostridium difficile colitis [Unknown]
  - Pancreatic carcinoma metastatic [Fatal]
  - Metabolic acidosis [Unknown]
  - Acute respiratory failure [Fatal]
  - Renal cyst [Unknown]

NARRATIVE: CASE EVENT DATE: 20160602
